FAERS Safety Report 15756059 (Version 1)
Quarter: 2018Q4

REPORT INFORMATION
  Report Type: Spontaneous
  Country: US (occurrence: US)
  Receive Date: 20181218
  Receipt Date: 20181218
  Transmission Date: 20190205
  Serious: No
  Sender: FDA-Public Use
  Company Number: None

PATIENT

DRUGS (2)
  1. LORAZEPAM LORAZEPAM [Suspect]
     Active Substance: LORAZEPAM
     Route: 048
  2. CLONAZEPAM CLONAZEPAM [Suspect]
     Active Substance: CLONAZEPAM
     Route: 048

REACTIONS (3)
  - Product dispensing error [None]
  - Product selection error [None]
  - Wrong product administered [None]
